FAERS Safety Report 5369495-3 (Version None)
Quarter: 2007Q2

REPORT INFORMATION
  Report Type: 
  Country: None (occurrence: None)
  Receive Date: 20070625
  Receipt Date: 20070619
  Transmission Date: 20071010
  Serious: Yes (Death, Hospitalization)
  Sender: FDA-Public Use
  Company Number: B0476384A

PATIENT
  Age: 39 Year
  Sex: Male

DRUGS (6)
  1. ASPIRIN [Suspect]
     Route: 065
  2. IBUPROFEN [Suspect]
     Route: 065
  3. DICLOFENAC [Suspect]
     Route: 065
  4. SIMVASTATIN [Suspect]
  5. GENTAMICIN [Suspect]
  6. DEFLAZACORT [Suspect]

REACTIONS (3)
  - MULTI-ORGAN FAILURE [None]
  - SEPTIC SHOCK [None]
  - TOXIC EPIDERMAL NECROLYSIS [None]
